FAERS Safety Report 19938089 (Version 1)
Quarter: 2021Q4

REPORT INFORMATION
  Report Type: Spontaneous
  Country: US (occurrence: US)
  Receive Date: 20211011
  Receipt Date: 20211011
  Transmission Date: 20220303
  Serious: No
  Sender: FDA-Public Use
  Company Number: US-ROCHE-2879451

PATIENT
  Sex: Female

DRUGS (1)
  1. ZELBORAF [Suspect]
     Active Substance: VEMURAFENIB
     Indication: Breast cancer female
     Dosage: TAKE 4 TABLETS (960 MG) BY MOUTH TWICE A DAY? LAST DOSE OF VEMURAFENIB WAS TAKEN ON 20/JUL/2021
     Route: 048

REACTIONS (2)
  - Dysphagia [Not Recovered/Not Resolved]
  - Thyroid disorder [Not Recovered/Not Resolved]
